FAERS Safety Report 4757615-0 (Version None)
Quarter: 2005Q3

REPORT INFORMATION
  Report Type: 
  Country: None (occurrence: None)
  Receive Date: 20050830
  Receipt Date: 20050818
  Transmission Date: 20060218
  Serious: Yes (Hospitalization, Other)
  Sender: FDA-Public Use
  Company Number: 2005112429

PATIENT
  Age: 57 Year
  Sex: Female

DRUGS (17)
  1. RELPAX [Suspect]
     Indication: MIGRAINE
     Dosage: 40 MG (PRN BID MAXIMUM), ORAL
     Route: 048
     Dates: start: 20050713, end: 20050801
  2. ALL OTHER THERAPEUTIC PRODUCTS (ALL OTHER THERAPEUTIC PRODUCTS) [Suspect]
     Indication: ILL-DEFINED DISORDER
  3. TRYPTANOL (AMITIPTYLINE HYDROCHLORIDE) [Concomitant]
  4. DORAL [Concomitant]
  5. ROHYPNOL (FLUNITRAZEPAM) [Concomitant]
  6. VEGETAMIN B (CHLORPROMAZINE HYDROCHLORIDE, PHENOBARBITAL, PROMETHAZINE [Concomitant]
  7. CHLORPROMAZINE HCL [Concomitant]
  8. MUCOSTA (REBAMIPIDE) [Concomitant]
  9. DOGMATYL (SULPIRIDE) [Concomitant]
  10. FAMOTIDINE [Concomitant]
  11. GASTROM (ECABET MONOSODIUM) [Concomitant]
  12. ZYPREXA [Concomitant]
  13. VALPROATE SODIUM [Concomitant]
  14. DEPAS (ETIZOLAM) [Concomitant]
  15. KEISHIKASHAKUYAKUDAIOUTOU (HERBAL EXTRACTS NOS) [Concomitant]
  16. VOLTAREN [Concomitant]
  17. BROTIZOLAM (BROTIZOLAM) [Concomitant]

REACTIONS (5)
  - ASTHMA [None]
  - CARDIAC FAILURE [None]
  - HYPOKINESIA [None]
  - INFECTION [None]
  - PNEUMONIA [None]
